FAERS Safety Report 6333472-6 (Version None)
Quarter: 2009Q3

REPORT INFORMATION
  Report Type: 
  Country: None (occurrence: None)
  Receive Date: 20090828
  Receipt Date: 20090820
  Transmission Date: 20100115
  Serious: Yes (Other)
  Sender: FDA-Public Use
  Company Number: PHHY2009BR35311

PATIENT
  Age: 50 Year
  Sex: Female

DRUGS (2)
  1. TEGRETOL [Suspect]
  2. CLONAZEPAM [Suspect]

REACTIONS (2)
  - SOMNOLENCE [None]
  - SUICIDE ATTEMPT [None]
